FAERS Safety Report 20478411 (Version 1)
Quarter: 2022Q1

REPORT INFORMATION
  Report Type: Spontaneous
  Country: ES (occurrence: ES)
  Receive Date: 20220216
  Receipt Date: 20220216
  Transmission Date: 20220423
  Serious: Yes (Hospitalization, Other)
  Sender: FDA-Public Use
  Company Number: ES-AUROBINDO-AUR-APL-2015-06615

PATIENT
  Age: 42 Month
  Sex: Male

DRUGS (2)
  1. AMOXICILLIN\CLAVULANIC ACID [Suspect]
     Active Substance: AMOXICILLIN\CLAVULANIC ACID
     Indication: Respiratory tract infection
     Dosage: UNK
     Route: 065
  2. IBUPROFEN [Suspect]
     Active Substance: IBUPROFEN
     Indication: Respiratory tract infection
     Dosage: UNK
     Route: 065

REACTIONS (9)
  - Toxic epidermal necrolysis [Recovering/Resolving]
  - Epidermal necrosis [Recovering/Resolving]
  - Dermatitis bullous [Recovering/Resolving]
  - Conjunctivitis [Recovering/Resolving]
  - Oral herpes [Recovering/Resolving]
  - Nikolsky^s sign [Recovering/Resolving]
  - Rhinitis [Recovering/Resolving]
  - Erythema [Recovering/Resolving]
  - Pruritus [Recovering/Resolving]
